FAERS Safety Report 20710403 (Version 1)
Quarter: 2022Q2

REPORT INFORMATION
  Report Type: Report from Study
  Country: None (occurrence: US)
  Receive Date: 20220414
  Receipt Date: 20220414
  Transmission Date: 20220721
  Serious: Yes (Death)
  Sender: FDA-Public Use
  Company Number: US-Pharmascience Inc.-2127766

PATIENT

DRUGS (2)
  1. DECITABINE [Suspect]
     Active Substance: DECITABINE
     Indication: Transformation to acute myeloid leukaemia
     Route: 058
  2. VENETOCLAX [Suspect]
     Active Substance: VENETOCLAX

REACTIONS (2)
  - Death [Fatal]
  - Off label use [Unknown]
